FAERS Safety Report 11826659 (Version 2)
Quarter: 2015Q4

REPORT INFORMATION
  Report Type: Spontaneous
  Country: JP (occurrence: JP)
  Receive Date: 20151211
  Receipt Date: 20151221
  Transmission Date: 20160305
  Serious: No
  Sender: FDA-Public Use
  Company Number: JP-SA-2015SA208700

PATIENT
  Age: 64 Year
  Sex: Female

DRUGS (10)
  1. PAXIL [Concomitant]
     Active Substance: PAROXETINE HYDROCHLORIDE
     Route: 065
     Dates: start: 20050407, end: 20120701
  2. EURODIN [Concomitant]
     Active Substance: ESTAZOLAM
     Route: 065
     Dates: start: 20060706, end: 20081217
  3. MYSLEE [Suspect]
     Active Substance: ZOLPIDEM TARTRATE
     Indication: INSOMNIA
     Route: 048
     Dates: start: 20050414, end: 20050622
  4. MYSLEE [Suspect]
     Active Substance: ZOLPIDEM TARTRATE
     Indication: INSOMNIA
     Route: 048
     Dates: start: 20110915, end: 20151104
  5. GOODMIN [Concomitant]
     Active Substance: BROTIZOLAM
     Route: 065
     Dates: start: 20050623, end: 20110302
  6. DOGMATYL [Concomitant]
     Active Substance: SULPIRIDE
     Route: 065
     Dates: start: 20130912, end: 20150401
  7. BENZALIN [Concomitant]
     Active Substance: NITRAZEPAM
     Route: 065
     Dates: start: 20050623, end: 20060705
  8. MYSLEE [Suspect]
     Active Substance: ZOLPIDEM TARTRATE
     Indication: INSOMNIA
     Route: 048
     Dates: start: 20110303, end: 20110914
  9. DEPAS [Concomitant]
     Active Substance: ETIZOLAM
     Route: 065
     Dates: start: 20090827, end: 20120701
  10. LUNESTA [Concomitant]
     Active Substance: ESZOPICLONE
     Route: 065
     Dates: start: 20151104

REACTIONS (1)
  - Eye pain [Recovered/Resolved]
